FAERS Safety Report 11325332 (Version 2)
Quarter: 2016Q4

REPORT INFORMATION
  Report Type: Report from Study
  Country: None (occurrence: US)
  Receive Date: 20150730
  Receipt Date: 20161121
  Transmission Date: 20170206
  Serious: Yes (Other)
  Sender: FDA-Public Use
  Company Number: US-ABBVIE-15K-163-1432742-00

PATIENT
  Sex: Female

DRUGS (2)
  1. HUMIRA [Suspect]
     Active Substance: ADALIMUMAB
     Route: 058
     Dates: end: 201605
  2. HUMIRA [Suspect]
     Active Substance: ADALIMUMAB
     Indication: PSORIATIC ARTHROPATHY
     Route: 058
     Dates: start: 201204, end: 201501

REACTIONS (17)
  - Visual acuity reduced [Not Recovered/Not Resolved]
  - Lethargy [Not Recovered/Not Resolved]
  - Diverticulitis [Not Recovered/Not Resolved]
  - Pain in extremity [Not Recovered/Not Resolved]
  - Colitis [Unknown]
  - Colitis ulcerative [Not Recovered/Not Resolved]
  - Depression [Not Recovered/Not Resolved]
  - Feeling of despair [Not Recovered/Not Resolved]
  - Inflammatory marker increased [Not Recovered/Not Resolved]
  - Finger deformity [Not Recovered/Not Resolved]
  - Blood potassium increased [Recovered/Resolved]
  - Sinusitis [Recovered/Resolved]
  - Polyp [Recovered/Resolved]
  - Diverticulitis [Unknown]
  - Macular fibrosis [Not Recovered/Not Resolved]
  - Food poisoning [Unknown]
  - Palpitations [Not Recovered/Not Resolved]

NARRATIVE: CASE EVENT DATE: 2012
